FAERS Safety Report 4761636-1 (Version None)
Quarter: 2005Q3

REPORT INFORMATION
  Report Type: 
  Country: None (occurrence: None)
  Receive Date: 20050906
  Receipt Date: 20050829
  Transmission Date: 20060218
  Serious: Yes (Death, Hospitalization)
  Sender: FDA-Public Use
  Company Number: PHBS2005AR12542

PATIENT
  Age: 63 Year
  Sex: Female

DRUGS (6)
  1. INSULIN [Concomitant]
     Indication: DIABETES MELLITUS
  2. NPH INSULIN [Concomitant]
     Indication: DIABETES MELLITUS
  3. METFORMIN [Concomitant]
  4. SILOSTAZOL [Concomitant]
  5. DONEPEZIL HCL [Concomitant]
  6. DIOVAN [Suspect]
     Indication: HYPERTENSION
     Dosage: 160 MG, QD

REACTIONS (4)
  - CARDIO-RESPIRATORY ARREST [None]
  - HYPERGLYCAEMIC HYPEROSMOLAR NONKETOTIC SYNDROME [None]
  - PYELONEPHRITIS [None]
  - THERAPY NON-RESPONDER [None]
